FAERS Safety Report 7557453-X (Version None)
Quarter: 2011Q2

REPORT INFORMATION
  Report Type: 
  Country: None (occurrence: None)
  Receive Date: 20110620
  Receipt Date: 20110609
  Transmission Date: 20111010
  Serious: Yes (Other)
  Sender: FDA-Public Use
  Company Number: FR-ROCHE-781765

PATIENT
  Sex: Male

DRUGS (13)
  1. ACTEMRA [Suspect]
     Route: 042
     Dates: start: 20101125, end: 20101125
  2. VALSARTAN [Concomitant]
     Dosage: 1 TABLET PER DAY
     Route: 048
  3. ACTEMRA [Suspect]
     Route: 042
     Dates: start: 20101029, end: 20101029
  4. ACTEMRA [Suspect]
     Indication: RHEUMATOID ARTHRITIS
     Dosage: FREQ: EVERY 5 WEEK, 1 INFUSION
     Route: 042
     Dates: start: 20100901, end: 20100901
  5. DETENSIEL [Concomitant]
     Dosage: 1 TABLET PER DAY
  6. ACETAMINOPHEN AND TRAMADOL HCL [Concomitant]
     Dosage: IF NEEDED
  7. ACTEMRA [Suspect]
     Route: 042
     Dates: start: 20110303, end: 20110303
  8. ACTEMRA [Suspect]
     Route: 042
     Dates: start: 20110407, end: 20110407
  9. ACTEMRA [Suspect]
     Route: 042
     Dates: start: 20110203, end: 20110203
  10. FOLIC ACID [Concomitant]
     Dosage: 2 TABLETS PER WEEK
  11. ACTEMRA [Suspect]
     Route: 042
     Dates: start: 20110106, end: 20110106
  12. METHOTREXATE [Concomitant]
     Dosage: 8 TABLETS PER WEEK
  13. VOLTAREN [Concomitant]
     Dosage: 2 AMPOULES PER MONTH

REACTIONS (2)
  - EOSINOPHILIA [None]
  - NEUTROPENIA [None]
